FAERS Safety Report 5579919-4 (Version None)
Quarter: 2008Q1

REPORT INFORMATION
  Report Type: 
  Country: None (occurrence: None)
  Receive Date: 20080103
  Receipt Date: 20071203
  Transmission Date: 20080703
  Serious: No
  Sender: FDA-Public Use
  Company Number: US-BAYER-200713778BWH

PATIENT
  Sex: Female

DRUGS (2)
  1. AVELOX [Suspect]
     Indication: SINUSITIS
     Dosage: TOTAL DAILY DOSE: 400 MG  UNIT DOSE: 400 MG
     Route: 048
     Dates: start: 20070801
  2. CORTICOSTEROIDS [Concomitant]
     Indication: RASH
     Route: 065

REACTIONS (4)
  - PHOTOSENSITIVITY REACTION [None]
  - RASH [None]
  - SUNBURN [None]
  - URTICARIA [None]
